FAERS Safety Report 26163854 (Version 1)
Quarter: 2025Q4

REPORT INFORMATION
  Report Type: Report from Study
  Country: US (occurrence: US)
  Receive Date: 20251216
  Receipt Date: 20251216
  Transmission Date: 20260118
  Serious: Yes (Other)
  Sender: TAKEDA
  Company Number: US-TAKEDA-2025TUS111270

PATIENT
  Age: 63 Year
  Sex: Female

DRUGS (1)
  1. MARIBAVIR [Suspect]
     Active Substance: MARIBAVIR
     Indication: Cytomegalovirus infection
     Dosage: 400 MILLIGRAM, BID
     Dates: start: 20251120

REACTIONS (6)
  - Drowning [Unknown]
  - Incorrect dose administered [Unknown]
  - Feeling cold [Unknown]
  - Swelling face [Unknown]
  - Fatigue [Unknown]
  - Dyspnoea [Unknown]
